FAERS Safety Report 21143785 (Version 2)
Quarter: 2022Q3

REPORT INFORMATION
  Report Type: Spontaneous
  Country: SG (occurrence: SG)
  Receive Date: 20220728
  Receipt Date: 20220810
  Transmission Date: 20221027
  Serious: Yes (Hospitalization)
  Sender: FDA-Public Use
  Company Number: SG-TEVA-2022-SG-2057741

PATIENT
  Age: 17 Year
  Sex: Male

DRUGS (8)
  1. OLANZAPINE [Suspect]
     Active Substance: OLANZAPINE
     Indication: Bipolar I disorder
     Dosage: 10 MILLIGRAM DAILY;
     Route: 065
     Dates: start: 2017, end: 2017
  2. HALOPERIDOL [Suspect]
     Active Substance: HALOPERIDOL
     Indication: Bipolar I disorder
     Dosage: ADMINISTERED UNDER A TRIAL
     Route: 065
     Dates: start: 2017, end: 2017
  3. RISPERIDONE [Suspect]
     Active Substance: RISPERIDONE
     Indication: Bipolar I disorder
     Dosage: ADMINISTERED UNDER A TRIAL
     Route: 065
     Dates: start: 2017, end: 2017
  4. LURASIDONE [Suspect]
     Active Substance: LURASIDONE
     Indication: Bipolar I disorder
     Route: 065
     Dates: start: 2017
  5. LURASIDONE [Suspect]
     Active Substance: LURASIDONE
     Route: 065
     Dates: end: 2017
  6. VALPROATE SODIUM [Concomitant]
     Active Substance: VALPROATE SODIUM
     Indication: Bipolar I disorder
     Dosage: 1000 MILLIGRAM DAILY;
     Route: 065
     Dates: start: 2017, end: 2017
  7. LORAZEPAM [Concomitant]
     Active Substance: LORAZEPAM
     Indication: Sedative therapy
     Route: 065
     Dates: start: 2017, end: 2017
  8. DIAZEPAM [Concomitant]
     Active Substance: DIAZEPAM
     Indication: Sedative therapy
     Route: 065
     Dates: start: 2017, end: 2017

REACTIONS (2)
  - Mania [Recovering/Resolving]
  - Drug ineffective [Unknown]

NARRATIVE: CASE EVENT DATE: 20170101
